FAERS Safety Report 14327607 (Version 2)
Quarter: 2018Q1

REPORT INFORMATION
  Report Type: Report from Study
  Country: US (occurrence: US)
  Receive Date: 20171227
  Receipt Date: 20180124
  Transmission Date: 20180509
  Serious: Yes (Hospitalization, Other)
  Sender: FDA-Public Use
  Company Number: US-GILEAD-2017-0312391

PATIENT
  Age: 62 Year
  Sex: Female
  Weight: 71.2 kg

DRUGS (11)
  1. POTASSIUM CHLORIDE. [Concomitant]
     Active Substance: POTASSIUM CHLORIDE
  2. LASIX [Concomitant]
     Active Substance: FUROSEMIDE
  3. ELIQUIS [Concomitant]
     Active Substance: APIXABAN
  4. REVATIO [Concomitant]
     Active Substance: SILDENAFIL CITRATE
  5. AMBRISENTAN [Suspect]
     Active Substance: AMBRISENTAN
     Indication: PULMONARY HYPERTENSION
     Dosage: 10 MG, QD
     Route: 065
     Dates: start: 20160722
  6. SINGULAIR [Concomitant]
     Active Substance: MONTELUKAST SODIUM
  7. ADEMPAS [Concomitant]
     Active Substance: RIOCIGUAT
  8. AUGMENTIN [Concomitant]
     Active Substance: AMOXICILLIN\CLAVULANATE POTASSIUM
  9. ANORO ELLIPTA [Concomitant]
     Active Substance: UMECLIDINIUM BROMIDE\VILANTEROL TRIFENATATE
  10. PREDNISONE. [Concomitant]
     Active Substance: PREDNISONE
  11. OXYGEN. [Concomitant]
     Active Substance: OXYGEN

REACTIONS (1)
  - Pneumonia [Unknown]

NARRATIVE: CASE EVENT DATE: 20171213
